FAERS Safety Report 7103254-6 (Version None)
Quarter: 2010Q4

REPORT INFORMATION
  Report Type: 
  Country: None (occurrence: None)
  Receive Date: 20101115
  Receipt Date: 20101101
  Transmission Date: 20110411
  Serious: Yes (Hospitalization, Disabling, Other)
  Sender: FDA-Public Use
  Company Number: JP-BAYER-JP-SHR-03-011731

PATIENT
  Age: 19 Year
  Sex: Male
  Weight: 61 kg

DRUGS (12)
  1. BETAFERON [Suspect]
     Indication: RELAPSING-REMITTING MULTIPLE SCLEROSIS
     Dosage: UNIT DOSE: 4 MIU
     Route: 058
     Dates: start: 20020731, end: 20020804
  2. BETAFERON [Suspect]
     Dosage: UNIT DOSE: 8 MIU
     Route: 058
     Dates: start: 20020806, end: 20021107
  3. SOLU-MEDROL [Suspect]
     Indication: RELAPSING-REMITTING MULTIPLE SCLEROSIS
     Dosage: UNIT DOSE: 1 G
     Route: 041
     Dates: start: 20020907, end: 20020909
  4. SOLU-MEDROL [Suspect]
     Dosage: UNIT DOSE: 1 G
     Route: 041
     Dates: start: 20020914, end: 20020916
  5. SOLU-MEDROL [Suspect]
     Dosage: UNIT DOSE: 1 G
     Route: 041
     Dates: start: 20020921, end: 20020923
  6. SOLU-MEDROL [Suspect]
     Dosage: UNIT DOSE: 1 G
     Route: 041
     Dates: start: 20021007, end: 20021009
  7. LOXONIN [Concomitant]
     Indication: PAIN PROPHYLAXIS
     Dosage: UNIT DOSE: 60 MG
     Route: 048
     Dates: start: 20020731, end: 20020813
  8. DASEN [Concomitant]
     Indication: PROPHYLAXIS
     Dosage: 1 TAB(S), 3X/DAY [DAILY DOSE: 3 TAB(S)] [TOTAL DOSE: 39 TAB(S)]
     Route: 048
     Dates: start: 20020731, end: 20020813
  9. MUCOSTA [Concomitant]
     Indication: PROPHYLAXIS AGAINST GASTROINTESTINAL ULCER
     Dosage: UNIT DOSE: 100 MG
     Route: 048
     Dates: start: 20020731, end: 20020813
  10. CYANOCOBALAMIN [Concomitant]
     Dosage: 1 TAB(S), 3X/DAY [DAILY DOSE: 3 TAB(S)]
     Route: 048
     Dates: start: 20020731
  11. INDOMETHACIN SODIUM [Concomitant]
     Indication: PAIN PROPHYLAXIS
     Dosage: UNIT DOSE: 25 MG
     Route: 048
     Dates: start: 20020907, end: 20020915
  12. GASTER D [Concomitant]
     Indication: PROPHYLAXIS AGAINST GASTROINTESTINAL ULCER
     Dosage: UNIT DOSE: 20 MG
     Route: 048
     Dates: start: 20020907, end: 20020915

REACTIONS (4)
  - HEMIPLEGIA [None]
  - MYELITIS TRANSVERSE [None]
  - NEUROMYELITIS OPTICA [None]
  - PARAPLEGIA [None]
